FAERS Safety Report 7053081-3 (Version None)
Quarter: 2010Q4

REPORT INFORMATION
  Report Type: 
  Country: None (occurrence: None)
  Receive Date: 20101020
  Receipt Date: 20101011
  Transmission Date: 20110411
  Serious: Yes (Hospitalization)
  Sender: FDA-Public Use
  Company Number: US-JNJFOC-20101002955

PATIENT
  Sex: Female
  Weight: 79.83 kg

DRUGS (9)
  1. RISPERDAL CONSTA [Suspect]
     Indication: HALLUCINATION, AUDITORY
     Route: 030
  2. XANAX [Concomitant]
     Indication: PALPITATIONS
     Route: 048
  3. XANAX [Concomitant]
     Indication: SLEEP DISORDER THERAPY
     Route: 048
  4. SINGULAIR [Concomitant]
     Indication: MULTIPLE ALLERGIES
     Route: 048
  5. EVOXAC [Concomitant]
     Indication: NASAL CONGESTION
     Route: 048
  6. EVOXAC [Concomitant]
     Indication: DRY EYE
     Route: 048
  7. AMBIEN [Concomitant]
     Indication: SLEEP DISORDER THERAPY
     Dosage: DAILY AT BED TIME
     Route: 048
  8. COREG [Concomitant]
     Indication: HYPERTENSION
     Route: 048
  9. ZEGERID [Concomitant]
     Indication: GASTROOESOPHAGEAL REFLUX DISEASE
     Route: 048

REACTIONS (5)
  - FATIGUE [None]
  - FEELING ABNORMAL [None]
  - NAUSEA [None]
  - PALPITATIONS [None]
  - VISUAL IMPAIRMENT [None]
